FAERS Safety Report 16012845 (Version 2)
Quarter: 2021Q4

REPORT INFORMATION
  Report Type: Spontaneous
  Country: US (occurrence: US)
  Receive Date: 20190227
  Receipt Date: 20211123
  Transmission Date: 20220303
  Serious: Yes (Other)
  Sender: FDA-Public Use
  Company Number: PHEH2019US008489

PATIENT
  Sex: Male

DRUGS (2)
  1. TASIGNA [Suspect]
     Active Substance: NILOTINIB
     Indication: Chronic myeloid leukaemia
     Dosage: 300 MG, BID
     Route: 048
     Dates: end: 20130820
  2. TASIGNA [Suspect]
     Active Substance: NILOTINIB
     Dosage: 150 MG, BID
     Route: 048
     Dates: start: 20131203, end: 201504

REACTIONS (34)
  - Ischaemic cardiomyopathy [Unknown]
  - Hepatitis [Unknown]
  - Myocardial infarction [Unknown]
  - Pneumonia [Unknown]
  - Coronary artery stenosis [Unknown]
  - Rhinorrhoea [Unknown]
  - Nasal congestion [Unknown]
  - Sneezing [Unknown]
  - Seasonal allergy [Unknown]
  - Burning sensation [Unknown]
  - Depression [Unknown]
  - Cyst [Unknown]
  - Eosinophilia [Unknown]
  - Cough [Unknown]
  - Palpitations [Unknown]
  - Headache [Unknown]
  - Hyperkeratosis [Unknown]
  - Dry mouth [Unknown]
  - Injury [Unknown]
  - Pain in extremity [Unknown]
  - Asthenia [Unknown]
  - Eye irritation [Unknown]
  - Fatigue [Unknown]
  - Coronary artery disease [Unknown]
  - Chest pain [Unknown]
  - Paraesthesia [Unknown]
  - Chest discomfort [Unknown]
  - Arthralgia [Unknown]
  - Rash [Unknown]
  - Dermatitis [Unknown]
  - Anxiety [Unknown]
  - Arteriosclerosis [Unknown]
  - Emotional distress [Unknown]
  - Pain [Unknown]
